FAERS Safety Report 7139103-X (Version None)
Quarter: 2010Q4

REPORT INFORMATION
  Report Type: 
  Country: None (occurrence: None)
  Receive Date: 20101206
  Receipt Date: 20101129
  Transmission Date: 20110411
  Serious: Yes (Other)
  Sender: FDA-Public Use
  Company Number: B0687250A

PATIENT
  Sex: Female

DRUGS (7)
  1. EPOPROSTENOL SODIUM [Suspect]
     Route: 042
  2. BOSENTAN [Suspect]
     Route: 065
  3. DOBUTAMINE HYDROCHLORIDE [Suspect]
     Route: 065
  4. DOPAMINE HYDROCHLORIDE [Suspect]
     Route: 065
  5. FUROSEMIDE [Suspect]
  6. HEPARIN SODIUM [Suspect]
     Route: 048
  7. SILDENAFIL CITRATE [Suspect]
     Route: 065

REACTIONS (3)
  - ABORTION INDUCED [None]
  - DRUG EXPOSURE DURING PREGNANCY [None]
  - PLATELET COUNT DECREASED [None]
